FAERS Safety Report 16481587 (Version 1)
Quarter: 2019Q2

REPORT INFORMATION
  Report Type: Spontaneous
  Country: US (occurrence: US)
  Receive Date: 20190627
  Receipt Date: 20190627
  Transmission Date: 20190711
  Serious: Yes (Hospitalization)
  Sender: FDA-Public Use
  Company Number: US-ROCHE-2344142

PATIENT
  Age: 32 Year
  Sex: Female

DRUGS (1)
  1. RITUXAN [Suspect]
     Active Substance: RITUXIMAB
     Indication: PRODUCT USED FOR UNKNOWN INDICATION
     Route: 065

REACTIONS (4)
  - Delusion [Unknown]
  - Pneumonia [Recovered/Resolved]
  - Acute flaccid myelitis [Recovered/Resolved with Sequelae]
  - Encephalitis [Recovered/Resolved with Sequelae]
